FAERS Safety Report 6942536-5 (Version None)
Quarter: 2010Q3

REPORT INFORMATION
  Report Type: 
  Country: None (occurrence: None)
  Receive Date: 20100826
  Receipt Date: 20100726
  Transmission Date: 20110219
  Serious: No
  Sender: FDA-Public Use
  Company Number: US-BAYER-201029036NA

PATIENT
  Age: 47 Year
  Sex: Male
  Weight: 82 kg

DRUGS (2)
  1. ULTRAVIST 370 [Suspect]
     Indication: COMPUTERISED TOMOGRAM
     Dosage: TOTAL DAILY DOSE: 100 ML  UNIT DOSE: 500 ML
     Route: 042
     Dates: start: 20100726, end: 20100726
  2. ULTRAVIST 370 [Suspect]
     Dosage: ULTRAVIST GIVEN AS AN ORAL AGENT
     Route: 048
     Dates: start: 20100726, end: 20100726

REACTIONS (1)
  - URTICARIA [None]
